FAERS Safety Report 16338581 (Version 2)
Quarter: 2019Q4

REPORT INFORMATION
  Report Type: Spontaneous
  Country: US (occurrence: US)
  Receive Date: 20190521
  Receipt Date: 20191106
  Transmission Date: 20200122
  Serious: Yes (Other)
  Sender: FDA-Public Use
  Company Number: US-PFIZER INC-2016305817

PATIENT
  Age: 80 Year
  Sex: Female

DRUGS (1)
  1. XELJANZ [Suspect]
     Active Substance: TOFACITINIB CITRATE
     Dosage: 5 MG, ONCE A DAY

REACTIONS (5)
  - Gastric ulcer [Unknown]
  - Off label use [Unknown]
  - Memory impairment [Unknown]
  - Gastrointestinal haemorrhage [Unknown]
  - Confusional state [Unknown]
